FAERS Safety Report 4443910-1 (Version None)
Quarter: 2004Q3

REPORT INFORMATION
  Report Type: 
  Country: None (occurrence: None)
  Receive Date: 20040729
  Receipt Date: 20030617
  Transmission Date: 20050211
  Serious: Yes (Hospitalization)
  Sender: FDA-Public Use
  Company Number: US-JNJFOC-20030602306

PATIENT
  Age: 23 Year
  Sex: Female

DRUGS (1)
  1. RISPERDAL [Suspect]
     Indication: MAJOR DEPRESSION
     Dosage: 1 MG, 2 IN 1 DAY
     Dates: start: 20030117, end: 20030301

REACTIONS (2)
  - DRUG EXPOSURE DURING PREGNANCY [None]
  - PSYCHOTIC DISORDER [None]
